FAERS Safety Report 4283103-4 (Version None)
Quarter: 2004Q1

REPORT INFORMATION
  Report Type: 
  Country: None (occurrence: None)
  Receive Date: 20040129
  Receipt Date: 20040113
  Transmission Date: 20041129
  Serious: Yes (Hospitalization)
  Sender: FDA-Public Use
  Company Number: 190427

PATIENT
  Age: 41 Year
  Sex: Female
  Weight: 81.6475 kg

DRUGS (1)
  1. AVONEX [Suspect]
     Indication: MULTIPLE SCLEROSIS
     Dosage: 30 MCG QW IM
     Route: 030
     Dates: start: 20020101

REACTIONS (20)
  - AREFLEXIA [None]
  - ASTHMA [None]
  - BALANCE DISORDER [None]
  - CONFUSIONAL STATE [None]
  - CONTUSION [None]
  - DEPRESSION [None]
  - FALL [None]
  - GASTROOESOPHAGEAL REFLUX DISEASE [None]
  - HYPOAESTHESIA [None]
  - NASOPHARYNGITIS [None]
  - PARAESTHESIA [None]
  - PARTIAL SEIZURES [None]
  - PHARYNGITIS STREPTOCOCCAL [None]
  - PNEUMONIA [None]
  - POSTOPERATIVE INFECTION [None]
  - SPINAL CORD DISORDER [None]
  - TUBAL LIGATION [None]
  - VERTIGO [None]
  - VISION BLURRED [None]
  - VISUAL DISTURBANCE [None]
